FAERS Safety Report 5519157-4 (Version None)
Quarter: 2007Q4

REPORT INFORMATION
  Report Type: 
  Country: None (occurrence: None)
  Receive Date: 20071116
  Receipt Date: 20071108
  Transmission Date: 20080405
  Serious: Yes (Other)
  Sender: FDA-Public Use
  Company Number: US-NOVOPROD-268394

PATIENT

DRUGS (8)
  1. NOVOLOG [Suspect]
     Dosage: 80 IU, QD
     Route: 058
     Dates: start: 20070919, end: 20071007
  2. HYOSCYAMINE [Concomitant]
     Indication: DRUG USE FOR UNKNOWN INDICATION
  3. WELCHOL [Concomitant]
     Indication: IRRITABLE BOWEL SYNDROME
  4. SYNTHROID [Concomitant]
     Indication: THYROID DISORDER
  5. FOLIC ACID [Concomitant]
  6. DARVOCET                           /00220901/ [Concomitant]
     Indication: ARTHRITIS
  7. ALEVE [Concomitant]
     Indication: ARTHRITIS
  8. REMICADE [Concomitant]
     Indication: ARTHRITIS

REACTIONS (3)
  - BLOOD GLUCOSE DECREASED [None]
  - DRUG DISPENSING ERROR [None]
  - NAUSEA [None]
